FAERS Safety Report 23127256 (Version 1)
Quarter: 2023Q4

REPORT INFORMATION
  Report Type: Report from Study
  Country: US (occurrence: None)
  Receive Date: 20231031
  Receipt Date: 20231031
  Transmission Date: 20240110
  Serious: Yes (Hospitalization)
  Sender: FDA-Public Use
  Company Number: 2023A242221

PATIENT
  Weight: 69.4 kg

DRUGS (1)
  1. CALQUENCE [Suspect]
     Active Substance: ACALABRUTINIB
     Indication: Chronic lymphocytic leukaemia
     Route: 048

REACTIONS (4)
  - Renal failure [Recovering/Resolving]
  - Pulmonary congestion [Recovering/Resolving]
  - Dyspnoea [Recovering/Resolving]
  - Blood uric acid increased [Recovering/Resolving]
